FAERS Safety Report 8021159-3 (Version None)
Quarter: 2011Q4

REPORT INFORMATION
  Report Type: 
  Country: None (occurrence: None)
  Receive Date: 20111223
  Receipt Date: 20111215
  Transmission Date: 20120403
  Serious: Yes (Hospitalization)
  Sender: FDA-Public Use
  Company Number: 2011MZ000112

PATIENT
  Age: 35 Year
  Sex: Male

DRUGS (2)
  1. BOTULINUM TOXIN TYPE A [Suspect]
     Indication: SCROTAL OPERATION
     Dosage: 100 IU;TOTAL;IM
     Route: 030
     Dates: start: 20111206, end: 20111206
  2. METHACRYLIC ACID (METHACRYLIC ACID) [Suspect]
     Indication: SCROTAL OPERATION
     Dosage: 1 DF; TOTAL;
     Dates: start: 20111206, end: 20111206

REACTIONS (4)
  - WHITE BLOOD CELL COUNT INCREASED [None]
  - PROCEDURAL PAIN [None]
  - NECROSIS [None]
  - INFECTION [None]
